FAERS Safety Report 13592497 (Version 2)
Quarter: 2017Q2

REPORT INFORMATION
  Report Type: Other
  Country: DE (occurrence: DE)
  Receive Date: 20170530
  Receipt Date: 20170605
  Transmission Date: 20170830
  Serious: Yes (Other)
  Sender: FDA-Public Use
  Company Number: DE-B. BRAUN MEDICAL INC.-2021355

PATIENT
  Age: 30 Day

DRUGS (2)
  1. RINGER [Suspect]
     Active Substance: RINGER^S SOLUTION
     Route: 050
  2. EPINEPHRINE. [Suspect]
     Active Substance: EPINEPHRINE
     Route: 050

REACTIONS (3)
  - Product use issue [Unknown]
  - Necrosis [Unknown]
  - Compartment syndrome [Unknown]
